FAERS Safety Report 9291397 (Version 1)
Quarter: 2013Q2

REPORT INFORMATION
  Report Type: Spontaneous
  Country: US (occurrence: US)
  Receive Date: 20130515
  Receipt Date: 20130515
  Transmission Date: 20140414
  Serious: No
  Sender: FDA-Public Use
  Company Number: US-BAUSCH-BL-2013-000649

PATIENT
  Age: 33 Year
  Sex: Male
  Weight: 120 kg

DRUGS (4)
  1. BROMDAY 0.09% [Suspect]
     Indication: PHOTOREFRACTIVE KERATECTOMY
     Route: 047
     Dates: start: 20120627, end: 20120628
  2. BROMDAY 0.09% [Suspect]
     Indication: EYE PAIN
     Route: 047
     Dates: start: 20120627, end: 20120628
  3. CLONAZEPAM [Concomitant]
     Indication: INSOMNIA
     Route: 048
  4. BLINK TEARS [Concomitant]
     Indication: PRODUCT USED FOR UNKNOWN INDICATION
     Route: 047

REACTIONS (2)
  - Eye irritation [Recovered/Resolved]
  - Drug ineffective for unapproved indication [Recovered/Resolved]
